FAERS Safety Report 7009252-5 (Version None)
Quarter: 2010Q3

REPORT INFORMATION
  Report Type: 
  Country: None (occurrence: None)
  Receive Date: 20100923
  Receipt Date: 20100910
  Transmission Date: 20110219
  Serious: Yes (Life-Threatening)
  Sender: FDA-Public Use
  Company Number: US-SANOFI-AVENTIS-2010SA056545

PATIENT
  Age: 54 Year
  Sex: Female

DRUGS (3)
  1. ARAVA [Suspect]
     Route: 048
     Dates: start: 20060207, end: 20080225
  2. ARAVA [Suspect]
     Route: 048
  3. REMICADE [Suspect]
     Indication: PSORIASIS
     Dosage: TOTAL 3 INFUSIONS, 300 MG EACH, IV DRIP EVERY 8 WEEKS
     Route: 041
     Dates: start: 20071128, end: 20080107

REACTIONS (4)
  - CARDIAC ARREST [None]
  - COMA HEPATIC [None]
  - HEPATIC FAILURE [None]
  - JAUNDICE [None]
